FAERS Safety Report 7259560-8 (Version None)
Quarter: 2011Q1

REPORT INFORMATION
  Report Type: 
  Country: None (occurrence: None)
  Receive Date: 20110130
  Receipt Date: 20101111
  Transmission Date: 20110831
  Serious: No
  Sender: FDA-Public Use
  Company Number: US-ABBOTT-09P-163-0615479-00

PATIENT
  Age: 1 Day
  Sex: Female
  Weight: 2.497 kg

DRUGS (1)
  1. HUMIRA [Suspect]
     Indication: DRUG EXPOSURE DURING PREGNANCY
     Route: 064

REACTIONS (3)
  - SMALL FOR DATES BABY [None]
  - JAUNDICE [None]
  - DRUG EXPOSURE DURING PREGNANCY [None]
